FAERS Safety Report 8839571 (Version 1)
Quarter: 2012Q4

REPORT INFORMATION
  Report Type: Spontaneous
  Country: US (occurrence: None)
  Receive Date: 20121012
  Receipt Date: 20121012
  Transmission Date: 20130627
  Serious: No
  Sender: FDA-Public Use
  Company Number: None

PATIENT
  Age: 60 Year
  Sex: Male
  Weight: 80.3 kg

DRUGS (1)
  1. WARFARIN [Suspect]
     Indication: PULMONARY EMBOLISM
     Route: 048
     Dates: start: 20101007, end: 20121010

REACTIONS (5)
  - Haematemesis [None]
  - Anaemia [None]
  - Upper gastrointestinal haemorrhage [None]
  - Dieulafoy^s vascular malformation [None]
  - International normalised ratio abnormal [None]
